FAERS Safety Report 4827875-6 (Version None)
Quarter: 2005Q4

REPORT INFORMATION
  Report Type: 
  Country: None (occurrence: None)
  Receive Date: 20051115
  Receipt Date: 20051111
  Transmission Date: 20060501
  Serious: Yes (Hospitalization)
  Sender: FDA-Public Use
  Company Number: FR-RB-2312-2005

PATIENT
  Age: 35 Year
  Sex: Male

DRUGS (3)
  1. BUPRENORPHINE HCL [Suspect]
     Indication: ELECTROLYTE SUBSTITUTION THERAPY
     Dosage: DOSAGE UNKNOWN
     Route: 060
  2. BUPRENORPHINE HCL [Suspect]
     Route: 065
  3. VALPROATE SODIUM [Concomitant]
     Indication: EPILEPSY
     Dosage: DOSAGE UNKNOWN
     Route: 065

REACTIONS (1)
  - EPILEPSY [None]
